FAERS Safety Report 13875458 (Version 1)
Quarter: 2017Q3

REPORT INFORMATION
  Report Type: Spontaneous
  Country: CA (occurrence: CA)
  Receive Date: 20170817
  Receipt Date: 20170817
  Transmission Date: 20171127
  Serious: Yes (Other)
  Sender: FDA-Public Use
  Company Number: CA-ORION CORPORATION ORION PHARMA-TREX2017-2483

PATIENT
  Age: 62 Year
  Sex: Female

DRUGS (10)
  1. RITUXAN [Suspect]
     Active Substance: RITUXIMAB
     Route: 042
  2. CICLOSPORIN [Suspect]
     Active Substance: CYCLOSPORINE
     Route: 065
  3. ARAVA [Suspect]
     Active Substance: LEFLUNOMIDE
     Route: 065
  4. IMURAN [Suspect]
     Active Substance: AZATHIOPRINE
     Route: 065
  5. ORENCIA [Suspect]
     Active Substance: ABATACEPT
     Route: 042
  6. ENBREL [Suspect]
     Active Substance: ETANERCEPT
     Route: 058
  7. ACTEMRA [Suspect]
     Active Substance: TOCILIZUMAB
     Route: 065
  8. REMICADE [Suspect]
     Active Substance: INFLIXIMAB
     Route: 042
  9. METHOTREXATE (TRADE NAME UNKNOWN) [Suspect]
     Active Substance: METHOTREXATE
     Route: 065
  10. SODIUM AUROTHIOMALATE [Suspect]
     Active Substance: GOLD SODIUM THIOMALATE
     Route: 030

REACTIONS (7)
  - Diabetes mellitus [Unknown]
  - Demyelination [Unknown]
  - Impaired gastric emptying [Unknown]
  - Therapeutic response decreased [Unknown]
  - Drug hypersensitivity [Unknown]
  - Rheumatoid arthritis [Unknown]
  - Renal impairment [Unknown]
